FAERS Safety Report 9789224 (Version 1)
Quarter: 2013Q4

REPORT INFORMATION
  Report Type: Spontaneous
  Country: GB (occurrence: GB)
  Receive Date: 20131230
  Receipt Date: 20131230
  Transmission Date: 20140711
  Serious: Yes (Other)
  Sender: FDA-Public Use
  Company Number: GB-BAXTER-2013BAX051513

PATIENT
  Age: 83 Year
  Sex: 0

DRUGS (10)
  1. METRONIDAZOLE 500 MG / 100 ML INTRAVENOUS INFUSION [Suspect]
     Indication: ANTIBIOTIC PROPHYLAXIS
     Route: 042
     Dates: start: 20111121, end: 20111121
  2. CEFUROXIME [Suspect]
     Indication: ANTIBIOTIC PROPHYLAXIS
     Route: 042
     Dates: start: 20111121, end: 20111121
  3. OMEPRAZOLE [Suspect]
     Indication: ANTIBIOTIC PROPHYLAXIS
     Route: 048
  4. ALENDRONIC ACID [Concomitant]
     Indication: ANTIBIOTIC PROPHYLAXIS
     Route: 048
  5. ALFACALCIDOL [Concomitant]
     Indication: ANTIBIOTIC PROPHYLAXIS
     Route: 048
  6. CO-CODAMOL [Concomitant]
     Indication: ANTIBIOTIC PROPHYLAXIS
     Route: 048
  7. DIPYRIDAMOLE [Concomitant]
     Indication: ANTIBIOTIC PROPHYLAXIS
     Route: 048
  8. SENNA [Concomitant]
     Indication: ANTIBIOTIC PROPHYLAXIS
     Route: 048
  9. SIMVASTATIN [Concomitant]
     Indication: ANTIBIOTIC PROPHYLAXIS
     Route: 048
  10. TAZOCIN [Concomitant]
     Indication: PNEUMONIA
     Route: 042
     Dates: start: 20111003, end: 20111101

REACTIONS (1)
  - Clostridium difficile infection [Recovered/Resolved]
